FAERS Safety Report 4968800-7 (Version None)
Quarter: 2006Q2

REPORT INFORMATION
  Report Type: 
  Country: None (occurrence: None)
  Receive Date: 20060411
  Receipt Date: 20051117
  Transmission Date: 20061013
  Serious: Yes (Life-Threatening)
  Sender: FDA-Public Use
  Company Number: JP-JPN-A20052801

PATIENT
  Age: 5 Year
  Sex: Male
  Weight: 16.3 kg

DRUGS (17)
  1. ALKERAN [Suspect]
     Indication: STEM CELL TRANSPLANT
     Dosage: 70MGM2 PER DAY
     Route: 042
     Dates: start: 20051113, end: 20051114
  2. CARBOPLATIN [Concomitant]
     Dosage: 210MG PER DAY
     Route: 042
     Dates: start: 20051111, end: 20051115
  3. VEPESID [Concomitant]
     Dosage: 70MG PER DAY
     Route: 042
     Dates: start: 20051111, end: 20051115
  4. KYTRIL [Concomitant]
     Dosage: 1.4ML PER DAY
     Route: 042
     Dates: start: 20051111, end: 20051118
  5. SOLU-MEDROL [Concomitant]
     Dosage: 125MG PER DAY
     Route: 042
     Dates: start: 20051117, end: 20051117
  6. IMMUNE GLOBULIN INTRAVENOUS (HUMAN) [Concomitant]
     Route: 042
     Dates: start: 20051110, end: 20051124
  7. NEUTROGIN [Concomitant]
  8. ZOVIRAX [Concomitant]
  9. TIENAM [Concomitant]
  10. PRODIF [Concomitant]
  11. SAXIZON [Concomitant]
  12. GASTER [Concomitant]
  13. MINOCYCLINE HCL [Concomitant]
  14. TOBRACIN [Concomitant]
  15. FOY [Concomitant]
  16. BUSCOPAN [Concomitant]
  17. FENTANEST [Concomitant]

REACTIONS (4)
  - ABDOMINAL PAIN [None]
  - BLOOD AMYLASE INCREASED [None]
  - HYPERAMYLASAEMIA [None]
  - STOMATITIS [None]
